FAERS Safety Report 5025799-5 (Version None)
Quarter: 2006Q2

REPORT INFORMATION
  Report Type: 
  Country: None (occurrence: None)
  Receive Date: 20060608
  Receipt Date: 20060608
  Transmission Date: 20061013
  Serious: Yes (Other)
  Sender: FDA-Public Use
  Company Number: None

PATIENT
  Age: 34 Year
  Sex: Female
  Weight: 50.8029 kg

DRUGS (1)
  1. AVEENO (JOHNSON AND JOHNSON) [Suspect]
     Dosage: DAILY

REACTIONS (5)
  - DRY SKIN [None]
  - NAUSEA [None]
  - PAIN OF SKIN [None]
  - PHARMACEUTICAL PRODUCT COMPLAINT [None]
  - VISION BLURRED [None]
